FAERS Safety Report 6579776 (Version 10)
Quarter: 2013Q1

REPORT INFORMATION
  Report Type: Spontaneous
  Country: US (occurrence: US)
  Receive Date: 20080313
  Receipt Date: 20130116
  Transmission Date: 20140127
  Serious: Yes (Death, Hospitalization, Other)
  Sender: FDA-Public Use
  Company Number: PHEH2008US02539

PATIENT
  Sex: Male

DRUGS (18)
  1. AREDIA [Suspect]
     Indication: HYPERCALCAEMIA OF MALIGNANCY
     Dosage: 90 MG,
  2. ZOMETA [Suspect]
  3. AMOXICILLIN [Concomitant]
  4. VINCRISTINE [Concomitant]
  5. ADRIAMYCIN [Concomitant]
  6. DEXAMETHASONE [Concomitant]
  7. CHEMOTHERAPEUTICS [Concomitant]
  8. LASIX [Concomitant]
  9. DIGOXIN [Concomitant]
  10. LISINOPRIL [Concomitant]
  11. PREDNISONE [Concomitant]
  12. DUONEB [Concomitant]
  13. COREG [Concomitant]
  14. FORADIL [Concomitant]
  15. COMBIVENT [Concomitant]
  16. PROTONIX [Concomitant]
  17. MONTELUKAST SODIUM [Concomitant]
  18. FUROSEMIDE [Concomitant]

REACTIONS (82)
  - Osteonecrosis of jaw [Fatal]
  - Purulent discharge [Fatal]
  - Swelling [Fatal]
  - Bone fragmentation [Fatal]
  - Pain [Fatal]
  - Dental caries [Fatal]
  - Infection [Fatal]
  - Gingival recession [Fatal]
  - Tooth loss [Fatal]
  - Deformity [Fatal]
  - Discomfort [Fatal]
  - Anxiety [Fatal]
  - Injury [Fatal]
  - Mastication disorder [Fatal]
  - Anhedonia [Fatal]
  - Exposed bone in jaw [Fatal]
  - Weight decreased [Fatal]
  - Pain in jaw [Fatal]
  - Tooth disorder [Fatal]
  - Hypophagia [Fatal]
  - General physical health deterioration [Fatal]
  - Jaw disorder [Fatal]
  - Physical disability [Fatal]
  - Emotional distress [Fatal]
  - Chronic obstructive pulmonary disease [Fatal]
  - Pneumonia [Unknown]
  - Renal failure acute [Unknown]
  - Osteoporosis [Unknown]
  - Cardiac failure congestive [Unknown]
  - Renal failure [Unknown]
  - Renal failure chronic [Unknown]
  - Pulmonary hypertension [Unknown]
  - Tricuspid valve incompetence [Unknown]
  - Dilatation ventricular [Unknown]
  - Aortic valve incompetence [Unknown]
  - Mitral valve incompetence [Unknown]
  - Bundle branch block right [Unknown]
  - Left ventricular dysfunction [Unknown]
  - Dyspnoea [Unknown]
  - Sinus tachycardia [Unknown]
  - Cardiomyopathy [Unknown]
  - Cardiac murmur [Unknown]
  - Ventricular extrasystoles [Unknown]
  - Hypoacusis [Unknown]
  - Oedema peripheral [Unknown]
  - Myocardial infarction [Unknown]
  - Conjunctival abrasion [Unknown]
  - Cardiomegaly [Unknown]
  - Spinal osteoarthritis [Unknown]
  - Rib fracture [Unknown]
  - Pleural fibrosis [Unknown]
  - Hypercalcaemia [Unknown]
  - Depression [Unknown]
  - Emphysema [Unknown]
  - Insomnia [Unknown]
  - Urinary retention [Unknown]
  - Hepatic congestion [Unknown]
  - Renal cyst [Unknown]
  - Respiratory distress [Unknown]
  - Gastrooesophageal reflux disease [Unknown]
  - Azotaemia [Unknown]
  - Hyperglycaemia [Unknown]
  - Fall [Unknown]
  - Osteopenia [Unknown]
  - Aspergillus infection [Unknown]
  - Decreased appetite [Unknown]
  - Muscular weakness [Unknown]
  - Fatigue [Unknown]
  - Overdose [Unknown]
  - Malaise [Unknown]
  - Lethargy [Unknown]
  - Bundle branch block left [Unknown]
  - Eye injury [Unknown]
  - Intervertebral disc degeneration [Unknown]
  - Lung infiltration [Recovering/Resolving]
  - Pneumonitis [Unknown]
  - Atelectasis [Recovering/Resolving]
  - Pulmonary oedema [Unknown]
  - Hypoxia [Unknown]
  - Tooth fracture [Fatal]
  - Periodontal disease [Fatal]
  - Nasal septum deviation [Unknown]
